FAERS Safety Report 11517691 (Version 1)
Quarter: 2015Q3

REPORT INFORMATION
  Report Type: Spontaneous
  Country: US (occurrence: None)
  Receive Date: 20150916
  Receipt Date: 20150916
  Transmission Date: 20151125
  Serious: Yes (Life-Threatening, Hospitalization, Disabling)
  Sender: FDA-Public Use
  Company Number: None

PATIENT
  Age: 66 Year
  Sex: Male
  Weight: 220 kg

DRUGS (1)
  1. ENBREL [Suspect]
     Active Substance: ETANERCEPT
     Indication: PSORIASIS

REACTIONS (5)
  - Fluid retention [None]
  - Hodgkin^s disease [None]
  - Guillain-Barre syndrome [None]
  - Cardiac disorder [None]
  - Dyspnoea [None]

NARRATIVE: CASE EVENT DATE: 201306
